FAERS Safety Report 23512507 (Version 1)
Quarter: 2024Q1

REPORT INFORMATION
  Report Type: Report from Study
  Country: US (occurrence: None)
  Receive Date: 20240212
  Receipt Date: 20240212
  Transmission Date: 20240410
  Serious: Yes (Other)
  Sender: FDA-Public Use
  Company Number: 2023A088035

PATIENT
  Sex: Female

DRUGS (2)
  1. CALQUENCE [Suspect]
     Active Substance: ACALABRUTINIB
     Indication: Chronic lymphocytic leukaemia
     Route: 048
     Dates: start: 20230307, end: 20230331
  2. ALLOPURINOL [Suspect]
     Active Substance: ALLOPURINOL

REACTIONS (4)
  - Hyperuricaemia [Unknown]
  - Renal injury [Unknown]
  - Liver injury [Unknown]
  - Urticaria [Unknown]
